FAERS Safety Report 25219481 (Version 4)
Quarter: 2025Q2

REPORT INFORMATION
  Report Type: Spontaneous
  Country: MX (occurrence: MX)
  Receive Date: 20250421
  Receipt Date: 20250617
  Transmission Date: 20250717
  Serious: Yes (Other)
  Sender: NOVARTIS
  Company Number: MX-002147023-NVSC2025MX064792

PATIENT
  Age: 41 Year
  Sex: Female
  Weight: 90.72 kg

DRUGS (4)
  1. CYCLOSPORINE [Suspect]
     Active Substance: CYCLOSPORINE
     Indication: Liver transplant
     Dosage: 75 MG, BID
     Route: 048
  2. CYCLOSPORINE [Suspect]
     Active Substance: CYCLOSPORINE
     Dosage: 76 MG, QD (FOR ABOUT AT LEAST 25 PLUS YEARS)
     Route: 065
  3. CYCLOSPORINE [Suspect]
     Active Substance: CYCLOSPORINE
     Dosage: 75 MG, Q12H (40 YEARS AGO)
     Route: 048
     Dates: end: 20250408
  4. CYCLOSPORINE [Suspect]
     Active Substance: CYCLOSPORINE
     Dosage: 75 MG, Q12H
     Route: 048
     Dates: start: 20250424

REACTIONS (8)
  - Toxic encephalopathy [Not Recovered/Not Resolved]
  - Intestinal obstruction [Recovered/Resolved]
  - Desmoid tumour [Recovered/Resolved]
  - Dysarthria [Recovered/Resolved]
  - Depression [Not Recovered/Not Resolved]
  - Anxiety [Not Recovered/Not Resolved]
  - Personality change [Not Recovered/Not Resolved]
  - Lethargy [Recovered/Resolved]

NARRATIVE: CASE EVENT DATE: 20240901
